FAERS Safety Report 15314932 (Version 1)
Quarter: 2018Q3

REPORT INFORMATION
  Report Type: Spontaneous
  Country: US (occurrence: US)
  Receive Date: 20180815
  Receipt Date: 20180815
  Transmission Date: 20181010
  Serious: Yes (Life-Threatening, Hospitalization, Other)
  Sender: FDA-Public Use
  Company Number: None

PATIENT
  Age: 46 Year
  Sex: Female
  Weight: 86.85 kg

DRUGS (5)
  1. CALCITRIOL. [Concomitant]
     Active Substance: CALCITRIOL
  2. CALCIUM?MAGNESIUM [Concomitant]
     Active Substance: CALCIUM\MAGNESIUM
  3. T3 LIOTHYRONINE A SR VEG 45 MCG 1 CAPSULE BY MOUTH IN THE MORNING [Suspect]
     Active Substance: LIOTHYRONINE
     Indication: HYPOTHYROIDISM
     Dosage: ?          QUANTITY:90 DF DOSAGE FORM;?
     Route: 048
     Dates: start: 20161225, end: 20180718
  4. LEVOTHYROXINE 88 MCG [Suspect]
     Active Substance: LEVOTHYROXINE
     Indication: HYPOTHYROIDISM
     Dosage: ?          QUANTITY:90 DF DOSAGE FORM;?
     Route: 048
  5. VITAMIN D [Concomitant]
     Active Substance: CHOLECALCIFEROL

REACTIONS (5)
  - Seizure [None]
  - Toxicity to various agents [None]
  - Loss of consciousness [None]
  - Chest discomfort [None]
  - Pain in extremity [None]

NARRATIVE: CASE EVENT DATE: 20180718
